FAERS Safety Report 11085853 (Version 2)
Quarter: 2015Q2

REPORT INFORMATION
  Report Type: Spontaneous
  Country: US (occurrence: US)
  Receive Date: 20150503
  Receipt Date: 20150525
  Transmission Date: 20150821
  Serious: No
  Sender: FDA-Public Use
  Company Number: US-JNJFOC-20121104345

PATIENT
  Age: 39 Year
  Sex: Female
  Weight: 56.25 kg

DRUGS (4)
  1. ORTHO CYCLEN [Suspect]
     Active Substance: ETHINYL ESTRADIOL\NORGESTIMATE
     Indication: ACNE
     Route: 048
     Dates: start: 20120814
  2. ALDACTONE [Concomitant]
     Active Substance: SPIRONOLACTONE
     Indication: ACNE
     Route: 048
     Dates: start: 201204
  3. ALDACTONE [Concomitant]
     Active Substance: SPIRONOLACTONE
     Indication: ALOPECIA
     Route: 048
     Dates: start: 201204
  4. ORTHO CYCLEN [Suspect]
     Active Substance: ETHINYL ESTRADIOL\NORGESTIMATE
     Indication: ALOPECIA
     Route: 048
     Dates: start: 20120814

REACTIONS (2)
  - Product use issue [Not Recovered/Not Resolved]
  - Muscle atrophy [Not Recovered/Not Resolved]

NARRATIVE: CASE EVENT DATE: 20120814
